FAERS Safety Report 10056079 (Version 2)
Quarter: 2014Q2

REPORT INFORMATION
  Report Type: Spontaneous
  Country: PL (occurrence: PL)
  Receive Date: 20140403
  Receipt Date: 20140410
  Transmission Date: 20141212
  Serious: Yes (Other)
  Sender: FDA-Public Use
  Company Number: PL-009507513-1404POL000079

PATIENT
  Age: 26 Year
  Sex: Female

DRUGS (2)
  1. MONTELUKAST SODIUM [Suspect]
     Indication: ASTHMA
     Dosage: 10 MG/DAY (^HIGH DOSE^)
     Route: 048
  2. FLUTICASONE [Suspect]
     Indication: ASTHMA
     Dosage: 2000 MICROGRAM/DAY (HIGH DOSE)
     Route: 055

REACTIONS (2)
  - Asthma [Recovering/Resolving]
  - Drug ineffective [Unknown]
